FAERS Safety Report 7009107-6 (Version None)
Quarter: 2010Q3

REPORT INFORMATION
  Report Type: 
  Country: None (occurrence: None)
  Receive Date: 20100923
  Receipt Date: 20100913
  Transmission Date: 20110219
  Serious: Yes (Hospitalization)
  Sender: FDA-Public Use
  Company Number: CA-JNJFOC-20100904848

PATIENT
  Sex: Female
  Weight: 61.4 kg

DRUGS (10)
  1. REMICADE [Suspect]
     Indication: RHEUMATOID ARTHRITIS
     Route: 042
  2. METHOTREXATE [Concomitant]
  3. PLAQUENIL [Concomitant]
  4. DIOVAN [Concomitant]
  5. RENEDIL [Concomitant]
  6. IRON [Concomitant]
  7. SINGULAIR [Concomitant]
  8. FOLIC ACID [Concomitant]
  9. OGEN [Concomitant]
  10. TYLENOL [Concomitant]

REACTIONS (1)
  - JOINT ARTHROPLASTY [None]
